FAERS Safety Report 5724237-4 (Version None)
Quarter: 2008Q2

REPORT INFORMATION
  Report Type: 
  Country: None (occurrence: None)
  Receive Date: 20080430
  Receipt Date: 20080421
  Transmission Date: 20081010
  Serious: Yes (Other)
  Sender: FDA-Public Use
  Company Number: US-PFIZER INC-2008035523

PATIENT
  Sex: Female
  Weight: 55.3 kg

DRUGS (16)
  1. LYRICA [Suspect]
     Indication: FIBROMYALGIA
     Dates: start: 20071201, end: 20080101
  2. LYRICA [Suspect]
     Indication: SCIATIC NERVE NEUROPATHY
  3. ADVAIR HFA [Concomitant]
  4. FENTANYL CITRATE [Concomitant]
  5. ALDACTONE [Concomitant]
  6. PREVACID [Concomitant]
  7. DIGOXIN [Concomitant]
  8. SOTALOL HYDROCHLORIDE [Concomitant]
  9. DIOVAN HCT [Concomitant]
  10. LASIX [Concomitant]
  11. BENTYL [Concomitant]
  12. VYTORIN [Concomitant]
  13. ZOLOFT [Concomitant]
  14. PRAMOSONE [Concomitant]
  15. XANAX [Concomitant]
  16. DRUG, UNSPECIFIED [Concomitant]

REACTIONS (2)
  - BLOOD PRESSURE INCREASED [None]
  - PALPITATIONS [None]
